FAERS Safety Report 4376032-9 (Version None)
Quarter: 2004Q2

REPORT INFORMATION
  Report Type: 
  Country: None (occurrence: None)
  Receive Date: 20040611
  Receipt Date: 20040531
  Transmission Date: 20050107
  Serious: Yes (Other)
  Sender: FDA-Public Use
  Company Number: JP-MERCK-0406USA00376

PATIENT
  Age: 55 Year
  Sex: Male

DRUGS (1)
  1. PEPCID [Suspect]
     Route: 048
     Dates: start: 20040101, end: 20040531

REACTIONS (1)
  - ENCEPHALOPATHY [None]
